FAERS Safety Report 18697134 (Version 2)
Quarter: 2021Q1

REPORT INFORMATION
  Report Type: Spontaneous
  Country: CO (occurrence: CO)
  Receive Date: 20210104
  Receipt Date: 20210108
  Transmission Date: 20210419
  Serious: No
  Sender: FDA-Public Use
  Company Number: CO-PFIZER INC-2020508849

PATIENT
  Age: 12 Year
  Sex: Female

DRUGS (1)
  1. GENOTROPIN [Suspect]
     Active Substance: SOMATROPIN
     Indication: SHORT STATURE
     Dosage: 2.4 MG, DAILY (7 TIMES PER WEEK)
     Route: 058
     Dates: start: 2018, end: 20201221

REACTIONS (4)
  - Device information output issue [Unknown]
  - Device failure [Unknown]
  - Drug ineffective [Unknown]
  - Drug dose omission by device [Unknown]

NARRATIVE: CASE EVENT DATE: 20201221
